FAERS Safety Report 4566966-4 (Version None)
Quarter: 2005Q1

REPORT INFORMATION
  Report Type: 
  Country: None (occurrence: None)
  Receive Date: 20050201
  Receipt Date: 20040106
  Transmission Date: 20050727
  Serious: Yes (Other)
  Sender: FDA-Public Use
  Company Number: US-BRISTOL-MYERS SQUIBB COMPANY-12472387

PATIENT
  Age: 42 Year
  Sex: Female

DRUGS (11)
  1. STADOL [Suspect]
     Dosage: DOSING: 10MG/ML
     Route: 045
     Dates: start: 19990121
  2. PHENERGAN [Concomitant]
     Dates: start: 19990122
  3. HYDROCODONE + ACETAMINOPHEN [Concomitant]
     Dates: start: 19990313
  4. OXYCODONE HCL [Concomitant]
     Dates: start: 19990511
  5. ROXICODONE [Concomitant]
     Dates: start: 19991102
  6. DIAZEPAM [Concomitant]
     Dates: start: 19991102
  7. PROZAC [Concomitant]
     Dates: start: 19990903
  8. ALBUTEROL [Concomitant]
     Dates: start: 19981203
  9. CELEBREX [Concomitant]
     Dates: start: 19990211
  10. LOTREL [Concomitant]
     Dosage: DOSING: 5-20MG
     Dates: start: 19991202
  11. AMBIEN [Concomitant]
     Dates: start: 20000204

REACTIONS (1)
  - DEPENDENCE [None]
